FAERS Safety Report 9551050 (Version 2)
Quarter: 2013Q3

REPORT INFORMATION
  Report Type: Spontaneous
  Country: US (occurrence: US)
  Receive Date: 20130925
  Receipt Date: 20130927
  Transmission Date: 20140515
  Serious: Yes (Death)
  Sender: FDA-Public Use
  Company Number: US-ROCHE-1280673

PATIENT
  Age: 84 Year
  Sex: Female
  Weight: 62.65 kg

DRUGS (2)
  1. XELODA [Suspect]
     Indication: BREAST CANCER
     Dosage: 3 TABLETS
     Route: 048
  2. COUMADIN [Concomitant]
     Indication: DEEP VEIN THROMBOSIS
     Route: 048

REACTIONS (2)
  - Intestinal resection [Fatal]
  - Intestinal obstruction [Fatal]
